FAERS Safety Report 7652241-8 (Version None)
Quarter: 2011Q3

REPORT INFORMATION
  Report Type: 
  Country: None (occurrence: None)
  Receive Date: 20110803
  Receipt Date: 20110726
  Transmission Date: 20111222
  Serious: No
  Sender: FDA-Public Use
  Company Number: US-BAYER-2011-065312

PATIENT
  Age: 29 Year
  Sex: Female

DRUGS (1)
  1. BEYAZ [Suspect]
     Indication: AFFECTIVE DISORDER
     Dosage: UNK
     Route: 048
     Dates: start: 20110601

REACTIONS (8)
  - ABNORMAL BEHAVIOUR [None]
  - NAUSEA [None]
  - IRRITABILITY [None]
  - FATIGUE [None]
  - AFFECT LABILITY [None]
  - CRYING [None]
  - MALAISE [None]
  - DEPRESSED MOOD [None]
